FAERS Safety Report 5194531-7 (Version None)
Quarter: 2006Q4

REPORT INFORMATION
  Report Type: 
  Country: None (occurrence: None)
  Receive Date: 20061222
  Receipt Date: 20061215
  Transmission Date: 20070319
  Serious: Yes (Other)
  Sender: FDA-Public Use
  Company Number: ENTC2006-0371

PATIENT
  Sex: Male

DRUGS (1)
  1. STALEVO 100 [Suspect]
     Dosage: 200 MG (50 MG, 4 IN 1 D)

REACTIONS (4)
  - BLOOD BILIRUBIN INCREASED [None]
  - CHROMATURIA [None]
  - RENAL IMPAIRMENT [None]
  - SPUTUM DISCOLOURED [None]
